FAERS Safety Report 23786070 (Version 2)
Quarter: 2024Q2

REPORT INFORMATION
  Report Type: Report from Study
  Country: US (occurrence: None)
  Receive Date: 20240426
  Receipt Date: 20240603
  Transmission Date: 20240716
  Serious: Yes (Other)
  Sender: FDA-Public Use
  Company Number: 2024A094074

PATIENT
  Sex: Female

DRUGS (1)
  1. CALQUENCE [Suspect]
     Active Substance: ACALABRUTINIB
     Indication: Chronic lymphocytic leukaemia
     Route: 048

REACTIONS (8)
  - Arrhythmia [Unknown]
  - Poor peripheral circulation [Unknown]
  - Pain [Unknown]
  - Memory impairment [Unknown]
  - Nausea [Unknown]
  - Rash [Unknown]
  - Asthenia [Unknown]
  - Product dose omission issue [Unknown]
